FAERS Safety Report 15221280 (Version 1)
Quarter: 2018Q3

REPORT INFORMATION
  Report Type: Spontaneous
  Country: US (occurrence: US)
  Receive Date: 20180731
  Receipt Date: 20180731
  Transmission Date: 20181010
  Serious: Yes (Life-Threatening, Hospitalization, Other)
  Sender: FDA-Public Use
  Company Number: US-BAYER-2018-140363

PATIENT
  Age: 61 Year
  Sex: Female

DRUGS (1)
  1. MOXIFLOXACIN ORAL [Suspect]
     Active Substance: MOXIFLOXACIN
     Indication: INFLUENZA LIKE ILLNESS
     Dosage: UNK

REACTIONS (9)
  - Lung disorder [None]
  - Stevens-Johnson syndrome [None]
  - Toxic epidermal necrolysis [None]
  - Haemoptysis [None]
  - Amylase increased [None]
  - Multiple organ dysfunction syndrome [None]
  - Stress cardiomyopathy [None]
  - Acute kidney injury [None]
  - Hepatic enzyme increased [None]
